FAERS Safety Report 5664688-X (Version None)
Quarter: 2008Q1

REPORT INFORMATION
  Report Type: 
  Country: None (occurrence: None)
  Receive Date: 20080312
  Receipt Date: 20080221
  Transmission Date: 20080703
  Serious: No
  Sender: FDA-Public Use
  Company Number: US020295

PATIENT
  Age: 73 Year
  Sex: Female
  Weight: 46.2669 kg

DRUGS (8)
  1. FENTORA [Suspect]
     Dosage: 1600 UG ONCE BUCCAL
     Route: 002
     Dates: start: 20070209, end: 20070209
  2. LIDODERM [Suspect]
     Indication: OSTEOPOROSIS
     Dosage: 4 PATCHES TOPICAL
     Route: 061
  3. LIDODERM [Suspect]
     Indication: PAIN
     Dosage: 4 PATCHES TOPICAL
     Route: 061
  4. FOSAMAX [Concomitant]
  5. TYLENOL (CAPLET) [Concomitant]
  6. ARICEPT [Concomitant]
  7. LIPITOR [Concomitant]
  8. LEXAPRO [Concomitant]

REACTIONS (7)
  - ACCIDENTAL EXPOSURE [None]
  - FLUSHING [None]
  - HYPERHIDROSIS [None]
  - MENTAL STATUS CHANGES [None]
  - OVERDOSE [None]
  - SOMNOLENCE [None]
  - WRONG DRUG ADMINISTERED [None]
